FAERS Safety Report 8006842-8 (Version None)
Quarter: 2011Q4

REPORT INFORMATION
  Report Type: 
  Country: None (occurrence: None)
  Receive Date: 20111227
  Receipt Date: 20111223
  Transmission Date: 20120403
  Serious: Yes (Death)
  Sender: FDA-Public Use
  Company Number: PHEH2011US04990

PATIENT
  Sex: Female
  Weight: 80 kg

DRUGS (2)
  1. EXJADE [Suspect]
     Dosage: 500 MG, BID
     Route: 048
     Dates: end: 20111202
  2. EXJADE [Suspect]
     Indication: THROMBOCYTOPENIA
     Dosage: 500 MG, BID
     Route: 048
     Dates: start: 20100622

REACTIONS (5)
  - NAUSEA [None]
  - DEATH [None]
  - MALAISE [None]
  - VOMITING [None]
  - DIARRHOEA [None]
